FAERS Safety Report 8939976 (Version 2)
Quarter: 2013Q1

REPORT INFORMATION
  Report Type: Spontaneous
  Country: US (occurrence: US)
  Receive Date: 20121203
  Receipt Date: 20130124
  Transmission Date: 20140127
  Serious: No
  Sender: FDA-Public Use
  Company Number: US-009507513-1211USA010503

PATIENT
  Age: 59 Year
  Sex: Male

DRUGS (3)
  1. PEGINTRON [Suspect]
     Indication: HEPATITIS C
     Dosage: 150 MICROGRAM, QW, REDIPEN
     Route: 058
     Dates: start: 201209
  2. VICTRELIS [Suspect]
     Indication: HEPATITIS C
     Dosage: 4 DF, TID
  3. RIBASPHERE [Suspect]

REACTIONS (2)
  - Abdominal distension [Unknown]
  - Local swelling [Unknown]
